FAERS Safety Report 6688580-7 (Version None)
Quarter: 2010Q2

REPORT INFORMATION
  Report Type: 
  Country: None (occurrence: None)
  Receive Date: 20100420
  Receipt Date: 20100408
  Transmission Date: 20101027
  Serious: Yes (Other)
  Sender: FDA-Public Use
  Company Number: US-PFIZER INC-2010040666

PATIENT
  Sex: Female
  Weight: 54 kg

DRUGS (6)
  1. CHANTIX [Suspect]
     Indication: SMOKING CESSATION THERAPY
     Dosage: 0.5 MG, 1X/DAY
     Route: 048
     Dates: start: 20100304
  2. CHANTIX [Suspect]
     Dosage: UNK
  3. CHANTIX [Suspect]
     Dosage: UNK
     Route: 048
     Dates: start: 20100304
  4. SIMVASTATIN [Concomitant]
     Indication: BLOOD CHOLESTEROL INCREASED
     Dosage: 80 MG, UNK
  5. PAXIL [Concomitant]
     Indication: SLEEP DISORDER
     Dosage: 60 MG, UNK
  6. SEROQUEL [Concomitant]
     Indication: SLEEP DISORDER
     Dosage: 200 MG, UNK

REACTIONS (9)
  - CONCUSSION [None]
  - DEPRESSION [None]
  - FALL [None]
  - FRACTURE [None]
  - MOOD SWINGS [None]
  - NERVE BLOCK [None]
  - NERVOUSNESS [None]
  - PSYCHIATRIC SYMPTOM [None]
  - SLEEP DISORDER [None]
